FAERS Safety Report 8986512 (Version 1)
Quarter: 2012Q4

REPORT INFORMATION
  Report Type: 
  Country: FR (occurrence: FR)
  Receive Date: 20121227
  Receipt Date: 20121227
  Transmission Date: 20130627
  Serious: Yes (Hospitalization, Other)
  Sender: FDA-Public Use
  Company Number: FR-AMGEN-FRASP2012081026

PATIENT
  Age: 65 Year
  Sex: Male

DRUGS (3)
  1. NPLATE [Suspect]
     Indication: IDIOPATHIC THROMBOCYTOPENIC PURPURA
     Dosage: 1 mug/kg, qwk
     Route: 058
     Dates: start: 201205
  2. IMUREL                             /00001501/ [Concomitant]
     Dosage: 50 UNK, bid
  3. PLAQUENIL                          /00072602/ [Concomitant]
     Dosage: 200 UNK, bid

REACTIONS (3)
  - Vena cava thrombosis [Recovering/Resolving]
  - Subclavian vein thrombosis [Recovering/Resolving]
  - Superior vena cava syndrome [Recovering/Resolving]
